FAERS Safety Report 17247266 (Version 1)
Quarter: 2020Q1

REPORT INFORMATION
  Report Type: Spontaneous
  Country: US (occurrence: US)
  Receive Date: 20200107
  Receipt Date: 20200107
  Transmission Date: 20200409
  Serious: Yes (Other)
  Sender: FDA-Public Use
  Company Number: None

PATIENT
  Age: 23 Year
  Sex: Female
  Weight: 91.8 kg

DRUGS (1)
  1. XOFLUZA [Suspect]
     Active Substance: BALOXAVIR MARBOXIL
     Route: 048

REACTIONS (3)
  - Depression [None]
  - Mental disorder due to a general medical condition [None]
  - Hormone level abnormal [None]

NARRATIVE: CASE EVENT DATE: 20191215
